FAERS Safety Report 7249282-1 (Version None)
Quarter: 2011Q1

REPORT INFORMATION
  Report Type: 
  Country: None (occurrence: None)
  Receive Date: 20110128
  Receipt Date: 20101108
  Transmission Date: 20110831
  Serious: Yes (Hospitalization)
  Sender: FDA-Public Use
  Company Number: US-BAYER-201038098NA

PATIENT
  Sex: Female
  Weight: 67.574 kg

DRUGS (19)
  1. OCELLA [Suspect]
     Indication: ACNE
  2. PREDNISONE [Concomitant]
     Dosage: 5 UNK, UNK
  3. PROGRAF [Concomitant]
     Dosage: 2 MG, BID
  4. RANITIDINE [Concomitant]
  5. SIMVASTATIN [Concomitant]
  6. NITROGLYCERIN [Concomitant]
  7. FUROSEMIDE [Concomitant]
     Dosage: UNK UNK, PRN
  8. ASPIRIN [Concomitant]
  9. TOPROL-XL [Concomitant]
     Dosage: UNK
     Dates: start: 20080101
  10. PREMARIN [Concomitant]
  11. MAGNESIUM [Concomitant]
     Dosage: 200 MG, TID
  12. CELLCEPT [Concomitant]
     Dosage: 750 MG, BID
  13. UNCODEABLE ^UNCLASSIFIABLE^ [Concomitant]
     Dosage: UNK
     Dates: start: 20070401
  14. UNCODEABLE ^UNCLASSIFIABLE^ [Concomitant]
  15. VITAMINS NOS [Concomitant]
  16. YASMIN [Suspect]
     Dosage: UNK
     Dates: start: 20040101, end: 20090101
  17. CALCITRIOL [Concomitant]
  18. YAZ [Suspect]
     Dosage: UNK
     Dates: start: 20040101, end: 20090101
  19. COZAAR [Concomitant]
     Dosage: UNK
     Dates: start: 20030901, end: 20090101

REACTIONS (5)
  - CHEST PAIN [None]
  - DYSPNOEA [None]
  - HEART INJURY [None]
  - PAIN [None]
  - HEART RATE IRREGULAR [None]
